FAERS Safety Report 21382247 (Version 1)
Quarter: 2022Q3

REPORT INFORMATION
  Report Type: Spontaneous
  Country: US (occurrence: None)
  Receive Date: 20220926
  Receipt Date: 20220926
  Transmission Date: 20221026
  Serious: Yes (Disabling)
  Sender: FDA-Public Use
  Company Number: None

PATIENT
  Age: 59 Year
  Sex: Female
  Weight: 69.75 kg

DRUGS (1)
  1. CLONAZEPAM [Suspect]
     Active Substance: CLONAZEPAM
     Indication: Anxiety
     Dates: start: 20130601, end: 20220612

REACTIONS (11)
  - Feeling abnormal [None]
  - Somnolence [None]
  - Anxiety [None]
  - Suicidal ideation [None]
  - Vertigo [None]
  - Tinnitus [None]
  - Tinnitus [None]
  - Temperature regulation disorder [None]
  - Disturbance in attention [None]
  - Social fear [None]
  - Balance disorder [None]

NARRATIVE: CASE EVENT DATE: 20130601
